FAERS Safety Report 16943104 (Version 1)
Quarter: 2019Q4

REPORT INFORMATION
  Report Type: Spontaneous
  Country: CN (occurrence: CN)
  Receive Date: 20191021
  Receipt Date: 20191021
  Transmission Date: 20200122
  Serious: Yes (Disabling, Other)
  Sender: FDA-Public Use
  Company Number: CN-BAXTER-2019BAX020441

PATIENT
  Age: 23 Year
  Sex: Male

DRUGS (12)
  1. ENDOXAN [Suspect]
     Active Substance: CYCLOPHOSPHAMIDE
     Indication: ACUTE LEUKAEMIA
     Dosage: ENDOXAN OF 1.2 G + MEIAN OF 0.4 + 0.9% NS OF 500 ML
     Route: 041
     Dates: start: 20190914, end: 20190914
  2. XIAIKE [Suspect]
     Active Substance: VINDESINE
     Dosage: DOSE RE-INTRODUCED, XIAIKE + 0.9% NS
     Route: 041
  3. ENDOXAN [Suspect]
     Active Substance: CYCLOPHOSPHAMIDE
     Dosage: DOSE RE-INTRODUCED, ENDOXAN + MEIAN + 0.9% NS
     Route: 041
  4. 0.9% SODIUM CHLORIDE INJECTION [Suspect]
     Active Substance: SODIUM CHLORIDE
     Dosage: DOSE RE-INTRODUCED, ENDOXAN + MEIAN  + 0.9% NS
     Route: 041
  5. 0.9% SODIUM CHLORIDE INJECTION [Suspect]
     Active Substance: SODIUM CHLORIDE
     Dosage: DOSE RE-INTRODUCED, SHANWEIDA + 0.9% NS
     Route: 041
  6. 0.9% SODIUM CHLORIDE INJECTION [Suspect]
     Active Substance: SODIUM CHLORIDE
     Indication: MEDICATION DILUTION
     Dosage: ENDOXAN OF 1.2 G + MEIAN OF 0.4 + 0.9% NS OF 500 ML
     Route: 041
     Dates: start: 20190914, end: 20190914
  7. SHANWEIDA [Suspect]
     Active Substance: IDARUBICIN HYDROCHLORIDE
     Dosage: DOSE RE-INTRODUCED WITH SHANWEIDA + 0.9% NS
     Route: 041
  8. SHANWEIDA [Suspect]
     Active Substance: IDARUBICIN HYDROCHLORIDE
     Indication: ACUTE LEUKAEMIA
     Dosage: SHANWEIDA OF 10 MG + 0.9% NS OF 50 ML
     Route: 041
     Dates: start: 20190914, end: 20190916
  9. 0.9% SODIUM CHLORIDE INJECTION [Suspect]
     Active Substance: SODIUM CHLORIDE
     Dosage: XIAIKE OF 3 MG + 0.9% NS OF 50 ML
     Route: 041
     Dates: start: 20190914, end: 20190914
  10. XIAIKE [Suspect]
     Active Substance: VINDESINE
     Indication: ACUTE LEUKAEMIA
     Dosage: XIAIKE OF 3 MG + 0.9% NS OF 50 ML
     Route: 041
     Dates: start: 20190914, end: 20190914
  11. 0.9% SODIUM CHLORIDE INJECTION [Suspect]
     Active Substance: SODIUM CHLORIDE
     Dosage: SHANWEIDA OF 10 MG + 0.9% NS OF 50 ML
     Route: 041
     Dates: start: 20190914, end: 20190916
  12. 0.9% SODIUM CHLORIDE INJECTION [Suspect]
     Active Substance: SODIUM CHLORIDE
     Dosage: DOSE RE-INTRODUCED, XIAIKE + 0.9% NS
     Route: 041

REACTIONS (1)
  - Hepatic function abnormal [Recovering/Resolving]

NARRATIVE: CASE EVENT DATE: 20190927
